FAERS Safety Report 5135503-8 (Version None)
Quarter: 2006Q4

REPORT INFORMATION
  Report Type: 
  Country: None (occurrence: None)
  Receive Date: 20061026
  Receipt Date: 20061016
  Transmission Date: 20070319
  Serious: Yes (Other)
  Sender: FDA-Public Use
  Company Number: US-JNJFOC-20061004906

PATIENT
  Age: 31 Year
  Sex: Male

DRUGS (2)
  1. FENTANYL [Suspect]
     Indication: INTENTIONAL DRUG MISUSE
     Route: 048
  2. APAP TAB [Concomitant]
     Indication: PAIN
     Route: 065

REACTIONS (5)
  - HYPERHIDROSIS [None]
  - INTENTIONAL DRUG MISUSE [None]
  - SUICIDAL IDEATION [None]
  - TACHYCARDIA [None]
  - VOMITING [None]
